FAERS Safety Report 5134834-5 (Version None)
Quarter: 2006Q4

REPORT INFORMATION
  Report Type: 
  Country: None (occurrence: None)
  Receive Date: 20061025
  Receipt Date: 20060920
  Transmission Date: 20070319
  Serious: Yes (Hospitalization)
  Sender: FDA-Public Use
  Company Number: 2006UW18423

PATIENT
  Age: 36 Year
  Sex: Female

DRUGS (2)
  1. ZOLADEX [Suspect]
     Indication: UTERINE LEIOMYOMA
     Route: 058
     Dates: start: 20060304, end: 20060304
  2. PROGESTERONE [Concomitant]
     Indication: UTERINE LEIOMYOMA
     Route: 048
     Dates: start: 20060501, end: 20060801

REACTIONS (3)
  - DEEP VEIN THROMBOSIS [None]
  - DRUG EXPOSURE DURING PREGNANCY [None]
  - PREGNANCY [None]
